FAERS Safety Report 19669355 (Version 1)
Quarter: 2021Q3

REPORT INFORMATION
  Report Type: Spontaneous
  Country: US (occurrence: US)
  Receive Date: 20210806
  Receipt Date: 20210806
  Transmission Date: 20211014
  Serious: Yes (Death, Hospitalization)
  Sender: FDA-Public Use
  Company Number: NVSC2021US177263

PATIENT
  Age: 61 Year

DRUGS (2)
  1. RANITIDINE. [Suspect]
     Active Substance: RANITIDINE
     Indication: DYSPEPSIA
     Dosage: 150 MG, TID
     Route: 048
     Dates: start: 200001, end: 201801
  2. RANITIDINE. [Suspect]
     Active Substance: RANITIDINE
     Indication: DYSPEPSIA
     Dosage: 150 MG, TID
     Route: 048
     Dates: start: 200001, end: 201801

REACTIONS (4)
  - Oesophageal carcinoma [Fatal]
  - Skin cancer [Fatal]
  - Incorrect dose administered [Unknown]
  - Colorectal cancer [Fatal]

NARRATIVE: CASE EVENT DATE: 20160101
